FAERS Safety Report 14971742 (Version 1)
Quarter: 2018Q2

REPORT INFORMATION
  Report Type: Spontaneous
  Country: US (occurrence: US)
  Receive Date: 20180604
  Receipt Date: 20180604
  Transmission Date: 20180711
  Serious: No
  Sender: FDA-Public Use
  Company Number: US-JNJFOC-20180527688

PATIENT
  Age: 22 Year
  Sex: Male
  Weight: 70.76 kg

DRUGS (3)
  1. CHILDRENS MOTRIN [Suspect]
     Active Substance: IBUPROFEN
     Indication: HEADACHE
     Dosage: ONCE OR TWICE DAILY AS NEEDED
     Route: 065
  2. CHILDRENS MOTRIN [Suspect]
     Active Substance: IBUPROFEN
     Indication: PYREXIA
     Dosage: ONCE OR TWICE DAILY AS NEEDED
     Route: 065
  3. CHILDRENS MOTRIN [Suspect]
     Active Substance: IBUPROFEN
     Indication: PAIN
     Dosage: ONCE OR TWICE DAILY AS NEEDED
     Route: 065

REACTIONS (2)
  - Drug administered to patient of inappropriate age [Unknown]
  - Off label use [Unknown]
